FAERS Safety Report 4588949-0 (Version None)
Quarter: 2005Q1

REPORT INFORMATION
  Report Type: 
  Country: None (occurrence: None)
  Receive Date: 20050216
  Receipt Date: 20050131
  Transmission Date: 20050727
  Serious: Yes (Hospitalization, Other)
  Sender: FDA-Public Use
  Company Number: US_0502111626

PATIENT
  Age: 83 Year
  Sex: Male
  Weight: 65 kg

DRUGS (13)
  1. GEMCITABINE HYDROCHLORIDE-IV (GEMCITABINE) [Suspect]
     Indication: DRUG USE FOR UNKNOWN INDICATION
     Dosage: 1000 MG/M2 OTHER
     Route: 050
     Dates: start: 20040628
  2. CPT 11 [Suspect]
     Indication: DRUG USE FOR UNKNOWN INDICATION
     Dosage: 100 MG/M2 OTHER
     Route: 050
     Dates: start: 20040628
  3. MS CONTIN [Concomitant]
  4. NEXIUM [Concomitant]
  5. HYDROCODONE [Concomitant]
  6. SYNTHROID [Concomitant]
  7. COSOPT [Concomitant]
  8. TRAVATAN (TRAVOPROST) [Concomitant]
  9. LORCET-HD [Concomitant]
  10. VITAMIN B-12 [Concomitant]
  11. MIRALAX [Concomitant]
  12. GLYCERINE SUPPOSITORIES [Concomitant]
  13. MORPHINE [Concomitant]

REACTIONS (13)
  - ARRHYTHMIA [None]
  - ASTHENIA [None]
  - BLOOD CALCIUM DECREASED [None]
  - BLOOD SODIUM DECREASED [None]
  - DIARRHOEA [None]
  - ELECTROCARDIOGRAM T WAVE ABNORMAL [None]
  - FATIGUE [None]
  - HAEMATOCRIT DECREASED [None]
  - HAEMOGLOBIN DECREASED [None]
  - HEART RATE IRREGULAR [None]
  - HYPOKALAEMIA [None]
  - HYPOTENSION [None]
  - SEPSIS SYNDROME [None]
